FAERS Safety Report 6735323-4 (Version None)
Quarter: 2010Q2

REPORT INFORMATION
  Report Type: 
  Country: None (occurrence: None)
  Receive Date: 20100520
  Receipt Date: 20100520
  Transmission Date: 20101027
  Serious: Yes (Other)
  Sender: FDA-Public Use
  Company Number: None

PATIENT
  Age: 59 Year
  Sex: Female

DRUGS (4)
  1. BUPROPION HCL [Suspect]
     Dosage: 150 MG PO
     Route: 048
  2. ATIVAN [Concomitant]
  3. MIRTAZAPINE [Concomitant]
  4. SEREQUEL [Concomitant]

REACTIONS (1)
  - DRUG EFFECT DECREASED [None]
